FAERS Safety Report 24316366 (Version 1)
Quarter: 2024Q3

REPORT INFORMATION
  Report Type: Spontaneous
  Country: NL (occurrence: NL)
  Receive Date: 20240913
  Receipt Date: 20240913
  Transmission Date: 20241017
  Serious: Yes (Other)
  Sender: MYLAN
  Company Number: None

PATIENT
  Age: 77 Year
  Sex: Male
  Weight: 70 kg

DRUGS (5)
  1. CLOZAPINE [Suspect]
     Active Substance: CLOZAPINE
     Indication: Aggression
     Dosage: 12.5 MILLIGRAM, QD, 1X0.5
     Route: 065
     Dates: start: 20240820, end: 20240821
  2. CALCIUM CARBONATE\CHOLECALCIFEROL [Concomitant]
     Active Substance: CALCIUM CARBONATE\CHOLECALCIFEROL
     Dosage: UNK, CHEWABLE TABLET, 2.5 G (GRAMS)/800 UNITS
     Route: 065
  3. HYPROMELLOSES [Concomitant]
     Active Substance: HYPROMELLOSES
     Dosage: 3.2 MILLIGRAM PER MILLILITRE, EYE DROPS, 3.2 MG/ML (MILLIGRAMS PER MILLILITRE)
     Route: 065
  4. LACOSAMIDE [Concomitant]
     Active Substance: LACOSAMIDE
     Dosage: 50 MILLIGRAM, TABLET, 50 MG (MILLIGRAM)
     Route: 065
  5. BRIVIACT [Concomitant]
     Active Substance: BRIVARACETAM
     Dosage: 100 MILLIGRAM, TABLET, 100 MG (MILLIGRAM)
     Route: 065

REACTIONS (6)
  - Epilepsy [Recovered/Resolved]
  - Anisocoria [Recovered/Resolved]
  - Posture abnormal [Recovered/Resolved]
  - Asthenia [Recovered/Resolved]
  - Dysarthria [Recovered/Resolved]
  - Off label use [Unknown]

NARRATIVE: CASE EVENT DATE: 20240820
